FAERS Safety Report 5165116-3 (Version None)
Quarter: 2006Q4

REPORT INFORMATION
  Report Type: 
  Country: None (occurrence: None)
  Receive Date: 20061124
  Receipt Date: 20061114
  Transmission Date: 20070319
  Serious: Yes (Death, Congenital Anomaly)
  Sender: FDA-Public Use
  Company Number: S06-USA-04378-02

PATIENT
  Sex: Male
  Weight: 4.1 kg

DRUGS (4)
  1. CELEXA [Suspect]
     Dates: start: 20021210, end: 20030501
  2. CLOMIPHENE CITRATE (CLOMIPHENE) [Concomitant]
  3. PENICILLIN [Concomitant]
  4. EPIDURAL (NOS) [Concomitant]

REACTIONS (75)
  - ABDOMINAL DISTENSION [None]
  - ACUTE RESPIRATORY FAILURE [None]
  - AGITATION [None]
  - APGAR SCORE LOW [None]
  - ASPIRATION [None]
  - ATELECTASIS [None]
  - ATRIAL SEPTAL DEFECT [None]
  - BACTERIAL INFECTION [None]
  - BASE EXCESS DECREASED [None]
  - BLOOD ALKALINE PHOSPHATASE INCREASED [None]
  - BLOOD PH DECREASED [None]
  - BRADYCARDIA NEONATAL [None]
  - BRAIN DAMAGE [None]
  - BRONCHIAL OBSTRUCTION [None]
  - BRONCHOPULMONARY DYSPLASIA [None]
  - CAESAREAN SECTION [None]
  - CARDIAC ARREST [None]
  - CARDIOMEGALY [None]
  - CEPHALHAEMATOMA [None]
  - CEREBRAL PALSY [None]
  - CHROMOSOME ABNORMALITY [None]
  - CHRONIC RESPIRATORY FAILURE [None]
  - CONGENITAL CENTRAL NERVOUS SYSTEM ANOMALY [None]
  - CONVULSION NEONATAL [None]
  - COORDINATION ABNORMAL [None]
  - COR PULMONALE [None]
  - CYANOSIS NEONATAL [None]
  - DEVELOPMENTAL DELAY [None]
  - DRUG EXPOSURE DURING PREGNANCY [None]
  - DYSMORPHISM [None]
  - EYE ROLLING [None]
  - FEELING COLD [None]
  - FLUID OVERLOAD [None]
  - FOETAL DISTRESS SYNDROME [None]
  - FREQUENT BOWEL MOVEMENTS [None]
  - GASTROOESOPHAGEAL REFLUX DISEASE [None]
  - GENERAL PHYSICAL HEALTH DETERIORATION [None]
  - HAEMATOCRIT DECREASED [None]
  - HYDRONEPHROSIS [None]
  - HYPERBILIRUBINAEMIA NEONATAL [None]
  - HYPERCAPNIA [None]
  - HYPOTONIA [None]
  - HYPOXIA [None]
  - INCREASED BRONCHIAL SECRETION [None]
  - LETHARGY [None]
  - LIVEDO RETICULARIS [None]
  - LOSS OF CONSCIOUSNESS [None]
  - LOW SET EARS [None]
  - MEMORY IMPAIRMENT [None]
  - MENTAL RETARDATION SEVERITY UNSPECIFIED [None]
  - NEONATAL DISORDER [None]
  - NEONATAL HEPATOMEGALY [None]
  - NEONATAL PNEUMONIA [None]
  - NEONATAL RESPIRATORY DISTRESS SYNDROME [None]
  - NEONATAL RESPIRATORY FAILURE [None]
  - OEDEMA [None]
  - OPHTHALMIA NEONATORUM [None]
  - OPTIC NERVE HYPOPLASIA [None]
  - OXYGEN SATURATION DECREASED [None]
  - PERSISTENT FOETAL CIRCULATION [None]
  - PROTHROMBIN TIME PROLONGED [None]
  - PULMONARY OEDEMA NEONATAL [None]
  - PULSE ABSENT [None]
  - PUPILLARY REFLEX IMPAIRED [None]
  - RASH PUSTULAR [None]
  - RESPIRATORY ACIDOSIS [None]
  - RESPIRATORY ARREST [None]
  - RIGHT VENTRICULAR SYSTOLIC PRESSURE [None]
  - SEPSIS NEONATAL [None]
  - SINUS TACHYCARDIA [None]
  - SPUTUM ABNORMAL [None]
  - SUPRAVENTRICULAR EXTRASYSTOLES [None]
  - TACHYCARDIA FOETAL [None]
  - TRICUSPID VALVE INCOMPETENCE [None]
  - VENTRICULAR SEPTAL DEFECT [None]
